FAERS Safety Report 26128992 (Version 1)
Quarter: 2025Q4

REPORT INFORMATION
  Report Type: Spontaneous
  Country: EG (occurrence: EG)
  Receive Date: 20251208
  Receipt Date: 20251208
  Transmission Date: 20260118
  Serious: Yes (Hospitalization, Other)
  Sender: EXELA PHARMA SCIENCES
  Company Number: EG-EXELAPHARMA-2025EXLA00220

PATIENT
  Age: 6 Year
  Sex: Female

DRUGS (4)
  1. ACETYLCYSTEINE [Suspect]
     Active Substance: ACETYLCYSTEINE
     Indication: Methaemoglobinaemia
     Dosage: SINGLE DOSE
  2. High-flow oxygen [Concomitant]
     Dosage: 15 ML/MIN
     Route: 055
  3. ASCORBIC ACID [Concomitant]
     Active Substance: ASCORBIC ACID
     Indication: Antioxidant therapy
     Route: 048
  4. Intravenous fluids [Concomitant]
     Dosage: UNKNOWN

REACTIONS (2)
  - Drug ineffective for unapproved indication [Unknown]
  - Condition aggravated [Recovered/Resolved]
